FAERS Safety Report 10409203 (Version 1)
Quarter: 2014Q1

REPORT INFORMATION
  Report Type: Spontaneous
  Country: US (occurrence: None)
  Receive Date: 20140131
  Receipt Date: 20140131
  Transmission Date: 20141002
  Serious: Yes (Hospitalization, Other)
  Sender: FDA-Public Use
  Company Number: 100053U

PATIENT
  Sex: Female
  Weight: 83.6 kg

DRUGS (9)
  1. KEPPRA [Suspect]
     Indication: CONVULSION
     Dates: start: 2008
  2. ACETYLSALICYLIC ACID W/BUTALBITAL [Concomitant]
  3. TRIAMCINOLONE [Concomitant]
  4. METFORMIN [Concomitant]
  5. PRILOSEC [Concomitant]
  6. FLUTICASONE [Concomitant]
  7. TRAZODONE HYDROCHLORIDE [Concomitant]
  8. TOPRAL [Concomitant]
  9. DILANTIN [Concomitant]

REACTIONS (7)
  - Convulsion [None]
  - Headache [None]
  - Sleep apnoea syndrome [None]
  - Hallucination [None]
  - Stress [None]
  - Eczema [None]
  - Inappropriate schedule of drug administration [None]
